FAERS Safety Report 6306798-X (Version None)
Quarter: 2009Q3

REPORT INFORMATION
  Report Type: 
  Country: None (occurrence: None)
  Receive Date: 20090812
  Receipt Date: 20090730
  Transmission Date: 20100115
  Serious: Yes (Other)
  Sender: FDA-Public Use
  Company Number: IE-ELI_LILLY_AND_COMPANY-IE200906005865

PATIENT
  Age: 26 Year
  Sex: Female

DRUGS (5)
  1. HUMULIN N [Suspect]
     Indication: GESTATIONAL DIABETES
     Dosage: 32 IU, UNK
     Route: 058
     Dates: start: 20090522, end: 20090529
  2. APIDRA [Concomitant]
     Indication: GESTATIONAL DIABETES
     Dosage: 15 IU, UNK
     Route: 058
     Dates: start: 20090515, end: 20090529
  3. INSUMAN BASAL [Concomitant]
     Indication: GESTATIONAL DIABETES
     Dosage: 40 IU, UNK
     Route: 058
     Dates: start: 20090515, end: 20090522
  4. LEVEMIR [Concomitant]
     Indication: GESTATIONAL DIABETES
     Dosage: UNK, UNK
     Dates: start: 20090612
  5. HUMALOG [Concomitant]

REACTIONS (5)
  - DRUG EXPOSURE DURING PREGNANCY [None]
  - FATIGUE [None]
  - GAIT DISTURBANCE [None]
  - MALAISE [None]
  - PAIN IN EXTREMITY [None]
